FAERS Safety Report 20840108 (Version 3)
Quarter: 2022Q3

REPORT INFORMATION
  Report Type: Spontaneous
  Country: US (occurrence: US)
  Receive Date: 20220517
  Receipt Date: 20220916
  Transmission Date: 20221026
  Serious: No
  Sender: FDA-Public Use
  Company Number: US-ELI_LILLY_AND_COMPANY-US202205006184

PATIENT
  Age: 55 Year
  Sex: Female

DRUGS (7)
  1. LYUMJEV [Suspect]
     Active Substance: INSULIN LISPRO-AABC
     Indication: Type 1 diabetes mellitus
     Dosage: UNK UNK, UNKNOWN
     Route: 058
     Dates: start: 2020
  2. LYUMJEV [Suspect]
     Active Substance: INSULIN LISPRO-AABC
     Dosage: 12 U, UNKNOWN (10 TO 12 PER MEAL)
     Route: 058
  3. LYUMJEV [Suspect]
     Active Substance: INSULIN LISPRO-AABC
     Dosage: 12 U, UNKNOWN (10 TO 12 PER MEAL)
     Route: 058
  4. HUMALOG [Suspect]
     Active Substance: INSULIN LISPRO
     Indication: Type 1 diabetes mellitus
     Dosage: UNK UNK, UNKNOWN
     Route: 058
  5. TRESIBA [Concomitant]
     Active Substance: INSULIN DEGLUDEC
     Indication: Type 1 diabetes mellitus
     Dosage: 20 U, EACH MORNING
     Dates: start: 2021
  6. NOVOLOG [Concomitant]
     Active Substance: INSULIN ASPART
     Indication: Product used for unknown indication
  7. JARDIANCE [Concomitant]
     Active Substance: EMPAGLIFLOZIN
     Indication: Type 1 diabetes mellitus
     Dosage: 12.5 MG, DAILY
     Dates: start: 2018

REACTIONS (6)
  - Blood glucose increased [Unknown]
  - Drug ineffective [Unknown]
  - Drug ineffective [Unknown]
  - Blood glucose increased [Unknown]
  - Blood glucose increased [Recovered/Resolved]
  - Drug ineffective [Unknown]

NARRATIVE: CASE EVENT DATE: 20220509
